FAERS Safety Report 12350793 (Version 2)
Quarter: 2016Q2

REPORT INFORMATION
  Report Type: Spontaneous
  Country: US (occurrence: US)
  Receive Date: 20160510
  Receipt Date: 20160518
  Transmission Date: 20160815
  Serious: Yes (Death, Hospitalization)
  Sender: FDA-Public Use
  Company Number: US-FRESENIUS MEDICAL CARE NORTH AMERICA-1051755

PATIENT
  Age: 85 Year
  Sex: Male
  Weight: 100 kg

DRUGS (7)
  1. DELFLEX [Suspect]
     Active Substance: CALCIUM CHLORIDE\DEXTROSE\MAGNESIUM CHLORIDE\SODIUM CHLORIDE\SODIUM LACTATE
     Indication: END STAGE RENAL DISEASE
     Route: 033
  2. ASPIRIN. [Concomitant]
     Active Substance: ASPIRIN
  3. CALCITRIOL. [Concomitant]
     Active Substance: CALCITRIOL
  4. LOSARTAN. [Concomitant]
     Active Substance: LOSARTAN
  5. COUMADIN [Concomitant]
     Active Substance: WARFARIN SODIUM
  6. PLAVIX [Concomitant]
     Active Substance: CLOPIDOGREL BISULFATE
  7. COREG [Concomitant]
     Active Substance: CARVEDILOL

REACTIONS (2)
  - Blood pressure decreased [Unknown]
  - Cardiac arrest [Fatal]

NARRATIVE: CASE EVENT DATE: 20160418
